FAERS Safety Report 5164273-2 (Version None)
Quarter: 2006Q4

REPORT INFORMATION
  Report Type: 
  Country: None (occurrence: None)
  Receive Date: 20061205
  Receipt Date: 20061128
  Transmission Date: 20070319
  Serious: Yes (Hospitalization, Other)
  Sender: FDA-Public Use
  Company Number: US-JNJFOC-20061200089

PATIENT
  Sex: Female
  Weight: 52.16 kg

DRUGS (7)
  1. REMICADE [Suspect]
  2. REMICADE [Suspect]
     Indication: RHEUMATOID ARTHRITIS
  3. METHOTREXATE [Concomitant]
  4. PLAQUENIL [Concomitant]
  5. MOBIC [Concomitant]
  6. PREDNISONE TAB [Concomitant]
  7. FOSAMAX [Concomitant]

REACTIONS (3)
  - ARRHYTHMIA [None]
  - LIMB DISCOMFORT [None]
  - PNEUMONIA [None]
